FAERS Safety Report 23285761 (Version 1)
Quarter: 2023Q4

REPORT INFORMATION
  Report Type: Report from Study
  Country: CA (occurrence: CA)
  Receive Date: 20231212
  Receipt Date: 20231212
  Transmission Date: 20240109
  Serious: Yes (Death)
  Sender: FDA-Public Use
  Company Number: CA-OTSUKA-2023_032147

PATIENT
  Age: 21 Year
  Sex: Female

DRUGS (1)
  1. ARIPIPRAZOLE [Suspect]
     Active Substance: ARIPIPRAZOLE
     Indication: Product used for unknown indication
     Dosage: 300 MG, QM
     Route: 030

REACTIONS (2)
  - Overdose [Fatal]
  - Underdose [Unknown]

NARRATIVE: CASE EVENT DATE: 20231125
